FAERS Safety Report 24824067 (Version 1)
Quarter: 2025Q1

REPORT INFORMATION
  Report Type: Report from Study
  Country: MX (occurrence: MX)
  Receive Date: 20250109
  Receipt Date: 20250109
  Transmission Date: 20250409
  Serious: Yes (Death)
  Sender: ROCHE
  Company Number: MX-ROCHE-10000173313

PATIENT

DRUGS (9)
  1. RITUXIMAB [Suspect]
     Active Substance: RITUXIMAB
     Indication: Product used for unknown indication
     Route: 065
  2. METHOTREXATE [Suspect]
     Active Substance: METHOTREXATE
     Indication: Product used for unknown indication
     Route: 065
  3. AZATHIOPRINE [Suspect]
     Active Substance: AZATHIOPRINE
     Indication: Product used for unknown indication
     Route: 065
  4. SIROLIMUS [Suspect]
     Active Substance: SIROLIMUS
     Indication: Product used for unknown indication
     Route: 065
  5. MERCAPTOPURINE [Suspect]
     Active Substance: MERCAPTOPURINE
     Indication: Product used for unknown indication
     Route: 065
  6. CYCLOSPORINE [Suspect]
     Active Substance: CYCLOSPORINE
     Indication: Product used for unknown indication
     Route: 065
  7. MYCOPHENOLIC ACID [Suspect]
     Active Substance: MYCOPHENOLIC ACID
     Indication: Product used for unknown indication
     Route: 065
  8. EVEROLIMUS [Suspect]
     Active Substance: EVEROLIMUS
     Indication: Product used for unknown indication
     Route: 065
  9. TACROLIMUS [Suspect]
     Active Substance: TACROLIMUS
     Indication: Product used for unknown indication
     Route: 065

REACTIONS (4)
  - Clostridium difficile infection [Fatal]
  - Septic shock [Fatal]
  - Abdominal sepsis [Fatal]
  - COVID-19 [Fatal]
